FAERS Safety Report 13154272 (Version 1)
Quarter: 2017Q1

REPORT INFORMATION
  Report Type: Spontaneous
  Country: US (occurrence: US)
  Receive Date: 20170126
  Receipt Date: 20170126
  Transmission Date: 20170428
  Serious: Yes (Hospitalization, Disabling)
  Sender: FDA-Public Use
  Company Number: None

PATIENT
  Age: 49 Year
  Sex: Female
  Weight: 108.86 kg

DRUGS (12)
  1. CLONIDINE. [Concomitant]
     Active Substance: CLONIDINE
  2. OTEZLA [Concomitant]
     Active Substance: APREMILAST
  3. CIMZIA [Suspect]
     Active Substance: CERTOLIZUMAB PEGOL
     Indication: PSORIATIC ARTHROPATHY
     Route: 058
     Dates: start: 20161014, end: 20161015
  4. CELEBREX [Concomitant]
     Active Substance: CELECOXIB
  5. OMEPRAZOLE. [Concomitant]
     Active Substance: OMEPRAZOLE
  6. CULTURELLE [Concomitant]
     Active Substance: LACTOBACILLUS RHAMNOSUS
  7. MOTRIN [Concomitant]
     Active Substance: IBUPROFEN
  8. TYLENOL [Concomitant]
     Active Substance: ACETAMINOPHEN
  9. ASPIRIN. [Concomitant]
     Active Substance: ASPIRIN
  10. IRBESARTAN. [Concomitant]
     Active Substance: IRBESARTAN
  11. ZOPHREN [Concomitant]
     Active Substance: ONDANSETRON
  12. FLAGYL [Concomitant]
     Active Substance: METRONIDAZOLE\METRONIDAZOLE HYDROCHLORIDE

REACTIONS (18)
  - Pyrexia [None]
  - Cough [None]
  - Bronchitis [None]
  - Joint range of motion decreased [None]
  - Malaise [None]
  - Chills [None]
  - Oropharyngeal pain [None]
  - Vaginal discharge [None]
  - Fatigue [None]
  - Abdominal pain [None]
  - Burning sensation [None]
  - Muscle spasms [None]
  - Weight decreased [None]
  - Rash [None]
  - Nausea [None]
  - Asthenia [None]
  - Blood urine present [None]
  - Headache [None]

NARRATIVE: CASE EVENT DATE: 20161014
